FAERS Safety Report 17092343 (Version 1)
Quarter: 2019Q4

REPORT INFORMATION
  Report Type: Spontaneous
  Country: FR (occurrence: FR)
  Receive Date: 20191129
  Receipt Date: 20191129
  Transmission Date: 20200122
  Serious: Yes (Hospitalization)
  Sender: FDA-Public Use
  Company Number: FR-PFIZER INC-2019510768

PATIENT
  Age: 40 Year
  Sex: Male
  Weight: 83 kg

DRUGS (4)
  1. PAROXETINE. [Suspect]
     Active Substance: PAROXETINE
     Dosage: 60 MG, SINGLE
     Route: 048
     Dates: start: 20190312, end: 20190312
  2. PROPRANOLOL [Suspect]
     Active Substance: PROPRANOLOL HYDROCHLORIDE
     Dosage: 760 MG, SINGLE
     Route: 048
     Dates: start: 20190312, end: 20190312
  3. ALPRAZOLAM. [Suspect]
     Active Substance: ALPRAZOLAM
     Dosage: 4.5 MG, SINGLE
     Route: 048
     Dates: start: 20190312, end: 20190312
  4. TRAMADOL. [Suspect]
     Active Substance: TRAMADOL
     Dosage: 1500 MG, SINGLE
     Route: 048
     Dates: start: 20190312, end: 20190312

REACTIONS (4)
  - Bradycardia [Recovered/Resolved]
  - Ejection fraction decreased [Recovered/Resolved]
  - Disorientation [Recovered/Resolved]
  - Toxicity to various agents [Recovered/Resolved]

NARRATIVE: CASE EVENT DATE: 20190312
